FAERS Safety Report 12913292 (Version 1)
Quarter: 2016Q4

REPORT INFORMATION
  Report Type: Report from Study
  Country: US (occurrence: US)
  Receive Date: 20161104
  Receipt Date: 20161104
  Transmission Date: 20170207
  Serious: Yes (Other)
  Sender: FDA-Public Use
  Company Number: PHHO2014US017714

PATIENT
  Age: 77 Year
  Sex: Female
  Weight: 76 kg

DRUGS (2)
  1. LIDOCAINE. [Concomitant]
     Active Substance: LIDOCAINE
     Indication: BIOPSY SKIN
     Dosage: 1 %, ONCE/SINGLE
     Route: 058
     Dates: start: 20141007, end: 20141007
  2. DABRAFENIB [Suspect]
     Active Substance: DABRAFENIB
     Indication: THYROID NEOPLASM
     Dosage: 150 MG, BID
     Route: 048
     Dates: start: 20140804

REACTIONS (1)
  - Squamous cell carcinoma [Recovered/Resolved]

NARRATIVE: CASE EVENT DATE: 20140903
